FAERS Safety Report 8479096 (Version 2)
Quarter: 2013Q2

REPORT INFORMATION
  Report Type: Spontaneous
  Country: US (occurrence: US)
  Receive Date: 20120327
  Receipt Date: 20130418
  Transmission Date: 20140414
  Serious: Yes (Hospitalization, Other)
  Sender: FDA-Public Use
  Company Number: US-ROCHE-1022862

PATIENT
  Age: 41 Year
  Sex: Female
  Weight: 53.57 kg

DRUGS (1)
  1. ACCUTANE [Suspect]
     Indication: ACNE CYSTIC
     Route: 065
     Dates: start: 1998, end: 1999

REACTIONS (8)
  - Diverticulitis [Unknown]
  - Peritonitis [Unknown]
  - Inflammatory bowel disease [Unknown]
  - Large intestine perforation [Unknown]
  - Depression [Unknown]
  - Intestinal haemorrhage [Unknown]
  - Large intestine polyp [Unknown]
  - Irritable bowel syndrome [Unknown]
